FAERS Safety Report 5510283-2 (Version None)
Quarter: 2007Q4

REPORT INFORMATION
  Report Type: 
  Country: None (occurrence: None)
  Receive Date: 20071108
  Receipt Date: 20071102
  Transmission Date: 20080405
  Serious: Yes (Hospitalization, Other)
  Sender: FDA-Public Use
  Company Number: US-ASTRAZENECA-2007UW25520

PATIENT
  Age: 28 Year
  Sex: Male

DRUGS (7)
  1. SEROQUEL XR [Suspect]
     Indication: FLIGHT OF IDEAS
     Route: 048
  2. SEROQUEL XR [Suspect]
     Route: 048
  3. SEROQUEL XR [Suspect]
     Route: 048
  4. SEROQUEL XR [Suspect]
     Route: 048
     Dates: start: 20070701
  5. ZOLOFT [Concomitant]
  6. REMERON [Concomitant]
  7. AMBIEN [Concomitant]

REACTIONS (13)
  - AMNESIA [None]
  - BLOOD PRESSURE FLUCTUATION [None]
  - DIZZINESS [None]
  - FEELING ABNORMAL [None]
  - HALLUCINATION [None]
  - HEADACHE [None]
  - LIPIDS ABNORMAL [None]
  - LOSS OF CONSCIOUSNESS [None]
  - MUSCLE TWITCHING [None]
  - NAUSEA [None]
  - SYNCOPE [None]
  - TREMOR [None]
  - WEIGHT INCREASED [None]
